FAERS Safety Report 15105623 (Version 1)
Quarter: 2018Q3

REPORT INFORMATION
  Report Type: Report from Study
  Country: IT (occurrence: IT)
  Receive Date: 20180704
  Receipt Date: 20180704
  Transmission Date: 20181010
  Serious: Yes (Hospitalization)
  Sender: FDA-Public Use
  Company Number: IT-TEVA-2018-IT-918576

PATIENT
  Age: 59 Year
  Sex: Male

DRUGS (9)
  1. LEVOFLOXACIN. [Suspect]
     Active Substance: LEVOFLOXACIN
     Indication: ANTIBIOTIC PROPHYLAXIS
     Dosage: 1 DOSAGE FORMS DAILY;
     Route: 048
     Dates: end: 20180312
  2. LIMICAN 50 MG COMPRESSE [Concomitant]
     Route: 048
  3. ZARZIO 30 MU/0.5 ML SOLUTION FOR INJECTION OR INFUSION IN PRE?FILLED S [Concomitant]
     Route: 058
  4. DELORAZEPAM [Concomitant]
     Active Substance: DELORAZEPAM
     Route: 048
  5. FOLINA 5 MG CAPSULE MOLLI [Concomitant]
     Route: 048
  6. FLUCONAZOLE. [Concomitant]
     Active Substance: FLUCONAZOLE
     Dosage: 1 DOSAGE FORMS DAILY;
     Route: 048
  7. NEO CYTAMEN 1000 MICROGRAMMI/2,5 ML SOLUZIONE INIETTABILE E PER USO OR [Concomitant]
     Route: 048
  8. LITAK [Suspect]
     Active Substance: CLADRIBINE
     Indication: HAIRY CELL LEUKAEMIA
     Route: 058
     Dates: start: 20180223, end: 20180223
  9. LITAK [Suspect]
     Active Substance: CLADRIBINE
     Indication: HAIRY CELL LEUKAEMIA
     Dosage: 10 MILLIGRAM DAILY;
     Route: 060
     Dates: start: 20180219, end: 20180222

REACTIONS (3)
  - Pruritus [Recovering/Resolving]
  - Rash [Recovering/Resolving]
  - Skin lesion [Recovering/Resolving]

NARRATIVE: CASE EVENT DATE: 20180312
